FAERS Safety Report 23880553 (Version 1)
Quarter: 2024Q2

REPORT INFORMATION
  Report Type: Spontaneous
  Country: US (occurrence: None)
  Receive Date: 20240521
  Receipt Date: 20240521
  Transmission Date: 20240716
  Serious: No
  Sender: FDA-Public Use
  Company Number: None

PATIENT
  Age: 50 Year
  Sex: 0
  Weight: 50.85 kg

DRUGS (6)
  1. BOTOX COSMETIC [Suspect]
     Active Substance: ONABOTULINUMTOXINA
     Indication: Product used for unknown indication
     Dosage: OTHER ROUTE : INJECTED INTO MULTIPLE AREAS ON FACE;?
     Route: 050
     Dates: start: 20240503, end: 20240503
  2. WELCHOL [Concomitant]
     Active Substance: COLESEVELAM HYDROCHLORIDE
  3. Zyrtecs [Concomitant]
  4. IRON [Concomitant]
     Active Substance: IRON
  5. VITAMIN A [Concomitant]
     Active Substance: VITAMIN A
  6. VITAMIN D [Concomitant]
     Active Substance: VITAMIN D NOS

REACTIONS (7)
  - Erythema [None]
  - Skin exfoliation [None]
  - Skin exfoliation [None]
  - Skin tightness [None]
  - Pain of skin [None]
  - Eye pruritus [None]
  - Pruritus [None]

NARRATIVE: CASE EVENT DATE: 20240515
